FAERS Safety Report 4864409-4 (Version None)
Quarter: 2005Q4

REPORT INFORMATION
  Report Type: 
  Country: None (occurrence: None)
  Receive Date: 20051222
  Receipt Date: 20051213
  Transmission Date: 20060501
  Serious: Yes (Death, Other)
  Sender: FDA-Public Use
  Company Number: JP-BRISTOL-MYERS SQUIBB COMPANY-13224845

PATIENT
  Age: 65 Year
  Sex: Male

DRUGS (6)
  1. CYCLOPHOSPHAMIDE [Suspect]
     Indication: DIFFUSE LARGE B-CELL LYMPHOMA
  2. BLEOMYCIN [Concomitant]
  3. ADRIAMYCIN [Concomitant]
  4. VINCRISTINE SULFATE [Concomitant]
  5. DEXAMETHASONE [Concomitant]
  6. ETOPOSIDE [Concomitant]

REACTIONS (2)
  - LUNG NEOPLASM MALIGNANT [None]
  - TREATMENT RELATED SECONDARY MALIGNANCY [None]
